FAERS Safety Report 5099470-8 (Version None)
Quarter: 2006Q3

REPORT INFORMATION
  Report Type: 
  Country: None (occurrence: None)
  Receive Date: 20060908
  Receipt Date: 20060810
  Transmission Date: 20061208
  Serious: Yes (Other)
  Sender: FDA-Public Use
  Company Number: US-BAYER-200613381BCC

PATIENT
  Age: 61 Year
  Sex: Female
  Weight: 66 kg

DRUGS (3)
  1. NEO SYNEPHRINE REGULAR STREGNTH [Suspect]
     Indication: POSTOPERATIVE CARE
     Route: 045
     Dates: start: 20060721
  2. MECLIZINE [Concomitant]
  3. NAUSEOUS MEDICATION [Concomitant]

REACTIONS (4)
  - BLOOD PRESSURE DECREASED [None]
  - DIZZINESS [None]
  - HAEMATEMESIS [None]
  - HYPOTENSION [None]
